FAERS Safety Report 9638142 (Version 1)
Quarter: 2013Q4

REPORT INFORMATION
  Report Type: Spontaneous
  Country: US (occurrence: None)
  Receive Date: 20131021
  Receipt Date: 20131021
  Transmission Date: 20140711
  Serious: Yes (Hospitalization)
  Sender: FDA-Public Use
  Company Number: None

PATIENT
  Age: 37 Year
  Sex: Female
  Weight: 88.91 kg

DRUGS (1)
  1. LATUDA [Suspect]
     Indication: BIPOLAR DISORDER
     Dosage: 2 TABLETS, QD, PO
     Route: 048
     Dates: start: 20131015, end: 20131017

REACTIONS (4)
  - Lip swelling [None]
  - Dyspnoea [None]
  - Nausea [None]
  - Choking sensation [None]
